FAERS Safety Report 6069530-3 (Version None)
Quarter: 2009Q2

REPORT INFORMATION
  Report Type: 
  Country: None (occurrence: None)
  Receive Date: 20090206
  Receipt Date: 20090204
  Transmission Date: 20091009
  Serious: Yes (Hospitalization)
  Sender: FDA-Public Use
  Company Number: US-ROXANE LABORATORIES, INC.-2009-RO-00127RO

PATIENT
  Sex: Male
  Weight: 93 kg

DRUGS (4)
  1. PREDNISONE [Suspect]
     Indication: PROSTATE CANCER
     Dosage: 10MG
     Route: 048
     Dates: start: 20090114
  2. ENZASTAURIN [Suspect]
     Indication: PROSTATE CANCER
     Dosage: 1125MG
     Route: 048
     Dates: start: 20090113, end: 20090113
  3. ENZASTAURIN [Suspect]
     Dosage: 500MG
     Route: 048
     Dates: start: 20090114
  4. DOCETAXEL [Suspect]
     Indication: PROSTATE CANCER
     Route: 042
     Dates: start: 20090114

REACTIONS (1)
  - FEBRILE NEUTROPENIA [None]
